FAERS Safety Report 11557608 (Version 1)
Quarter: 2015Q3

REPORT INFORMATION
  Report Type: Spontaneous
  Country: JP (occurrence: JP)
  Receive Date: 20150926
  Receipt Date: 20150926
  Transmission Date: 20151125
  Serious: Yes (Hospitalization)
  Sender: FDA-Public Use
  Company Number: PHHY2015JP116184

PATIENT
  Sex: Male

DRUGS (2)
  1. RIVASTACH [Suspect]
     Active Substance: RIVASTIGMINE
     Indication: DEMENTIA ALZHEIMER^S TYPE
     Route: 062
     Dates: start: 2015, end: 201508
  2. RIVASTACH [Suspect]
     Active Substance: RIVASTIGMINE
     Dosage: 9.5 MG/24 HOURS (18 MG RIVASTIGMIN BASE ONCE A DAY, EXELON PATCH 10)
     Route: 062
     Dates: start: 201509

REACTIONS (3)
  - Abnormal dreams [Unknown]
  - Angina pectoris [Unknown]
  - Insomnia [Unknown]

NARRATIVE: CASE EVENT DATE: 201509
